FAERS Safety Report 5206038-9 (Version None)
Quarter: 2006Q4

REPORT INFORMATION
  Report Type: 
  Country: None (occurrence: None)
  Receive Date: 20061027
  Receipt Date: 20060731
  Transmission Date: 20070319
  Serious: No
  Sender: FDA-Public Use
  Company Number: 200617031US

PATIENT
  Age: 61 Year
  Sex: Female
  Weight: 72.72 kg

DRUGS (1)
  1. KETEK [Suspect]
     Indication: SINUSITIS
     Dosage: QD
     Dates: start: 20060629, end: 20060704

REACTIONS (4)
  - BLADDER DISORDER [None]
  - BLOOD URINE [None]
  - DYSURIA [None]
  - NEPHRITIS [None]
